FAERS Safety Report 9186696 (Version 2)
Quarter: 2012Q4

REPORT INFORMATION
  Report Type: 
  Country: US (occurrence: US)
  Receive Date: 20121102
  Receipt Date: 20121102
  Transmission Date: 20130627
  Serious: No
  Sender: FDA-Public Use
  Company Number: US-JNJFOC-2010014409

PATIENT
  Sex: Female
  Weight: 69.4 kg

DRUGS (2)
  1. ROGAINE FOR WOMEN REGULAR STRENGTH [Suspect]
     Route: 061
  2. ROGAINE FOR WOMEN REGULAR STRENGTH [Suspect]
     Indication: ALOPECIA
     Dosage: Daily Dose Text: under 1ml once daily
     Route: 061
     Dates: start: 20110323

REACTIONS (4)
  - Incorrect dose administered [Unknown]
  - Application site pruritus [Unknown]
  - Hair colour changes [Unknown]
  - Wrong technique in drug usage process [Unknown]
